FAERS Safety Report 13208486 (Version 1)
Quarter: 2017Q1

REPORT INFORMATION
  Report Type: Spontaneous
  Country: US (occurrence: US)
  Receive Date: 20170209
  Receipt Date: 20170209
  Transmission Date: 20170428
  Serious: No
  Sender: FDA-Public Use
  Company Number: US-ROCHE-1750361

PATIENT
  Sex: Female

DRUGS (8)
  1. LASIKAL [Concomitant]
  2. OMEPRAZOLE. [Concomitant]
     Active Substance: OMEPRAZOLE
  3. LIOTHYRONINE [Concomitant]
     Active Substance: LIOTHYRONINE
  4. GABAPENTIN. [Concomitant]
     Active Substance: GABAPENTIN
  5. NUTROPIN AQ [Suspect]
     Active Substance: SOMATROPIN
     Indication: PRODUCT USED FOR UNKNOWN INDICATION
     Route: 065
     Dates: start: 201604
  6. MOTRIN IB [Concomitant]
     Active Substance: IBUPROFEN
  7. CABERGOLINE. [Concomitant]
     Active Substance: CABERGOLINE
  8. LEVOTHYROXIN [Concomitant]
     Active Substance: LEVOTHYROXINE

REACTIONS (3)
  - Pain [Unknown]
  - Thermal burn [Unknown]
  - Contusion [Unknown]
